FAERS Safety Report 19510843 (Version 1)
Quarter: 2021Q3

REPORT INFORMATION
  Report Type: Spontaneous
  Country: US (occurrence: US)
  Receive Date: 20210708
  Receipt Date: 20210708
  Transmission Date: 20211014
  Serious: Yes (Other)
  Sender: FDA-Public Use
  Company Number: None

PATIENT
  Age: 47 Year
  Sex: Female

DRUGS (1)
  1. BUPROPION 150MG XL [Suspect]
     Active Substance: BUPROPION
     Indication: MAJOR DEPRESSION
     Route: 048

REACTIONS (4)
  - Product substitution issue [None]
  - Headache [None]
  - Emotional distress [None]
  - Manufacturing issue [None]

NARRATIVE: CASE EVENT DATE: 20190228
